FAERS Safety Report 8804546 (Version 1)
Quarter: 2012Q4

REPORT INFORMATION
  Report Type: 
  Country: US (occurrence: US)
  Receive Date: 20120923
  Receipt Date: 20120923
  Transmission Date: 20130627
  Serious: No
  Sender: FDA-Public Use
  Company Number: US-009507513-1209USA007541

PATIENT
  Age: 51 Year
  Sex: Female

DRUGS (2)
  1. INTRONA [Suspect]
     Indication: INTRAOCULAR MELANOMA
     Dosage: 0.5 ml, q3w
     Route: 058
     Dates: start: 20120730
  2. MOTRIN [Concomitant]

REACTIONS (3)
  - Pain [Not Recovered/Not Resolved]
  - Burning sensation [Not Recovered/Not Resolved]
  - Urticaria [Not Recovered/Not Resolved]
